FAERS Safety Report 4587303-5 (Version None)
Quarter: 2005Q1

REPORT INFORMATION
  Report Type: 
  Country: None (occurrence: None)
  Receive Date: 20050215
  Receipt Date: 20050204
  Transmission Date: 20050727
  Serious: Yes (Hospitalization, Other)
  Sender: FDA-Public Use
  Company Number: 2005-01-1781

PATIENT
  Age: 36 Year
  Sex: Male

DRUGS (6)
  1. CLARITIN [Suspect]
     Indication: RHINITIS ALLERGIC
     Dosage: 10 MG OD ORAL
     Route: 048
     Dates: start: 20020701
  2. ATENOLOL [Concomitant]
  3. LIPITOR [Concomitant]
  4. NITROLINGUAL [Concomitant]
  5. RANITIDINE [Concomitant]
  6. FLONASE [Concomitant]

REACTIONS (1)
  - ARRHYTHMIA [None]
